FAERS Safety Report 20776734 (Version 1)
Quarter: 2022Q2

REPORT INFORMATION
  Report Type: Spontaneous
  Country: US (occurrence: US)
  Receive Date: 20220502
  Receipt Date: 20220502
  Transmission Date: 20220720
  Serious: No
  Sender: FDA-Public Use
  Company Number: US-PFIZER INC-2020452112

PATIENT
  Age: 75 Year
  Sex: Female

DRUGS (1)
  1. LYRICA [Suspect]
     Active Substance: PREGABALIN
     Indication: Polyneuropathy
     Dosage: 75 MG, 3X/DAY(1 (ONE) CAPSULE BY MOUTH THREE TIMES DAILY, MAX DAILY DOSE: 3 CAPSULE)
     Route: 048

REACTIONS (1)
  - Depression [Unknown]
